FAERS Safety Report 11330675 (Version 1)
Quarter: 2015Q3

REPORT INFORMATION
  Report Type: Spontaneous
  Country: US (occurrence: None)
  Receive Date: 20150731
  Receipt Date: 20150731
  Transmission Date: 20151125
  Serious: Yes (Hospitalization)
  Sender: FDA-Public Use
  Company Number: None

PATIENT
  Age: 54 Year
  Sex: Female

DRUGS (1)
  1. HARVONI [Suspect]
     Active Substance: LEDIPASVIR\SOFOSBUVIR
     Indication: HEPATITIS C
     Route: 048
     Dates: start: 20150628

REACTIONS (6)
  - Fluid retention [None]
  - White blood cell count decreased [None]
  - Drug interaction [None]
  - Blood creatinine increased [None]
  - Blood glucose decreased [None]
  - Renal impairment [None]

NARRATIVE: CASE EVENT DATE: 20150710
